FAERS Safety Report 4821421-9 (Version None)
Quarter: 2005Q4

REPORT INFORMATION
  Report Type: 
  Country: None (occurrence: None)
  Receive Date: 20051103
  Receipt Date: 20051024
  Transmission Date: 20060501
  Serious: Yes (Hospitalization)
  Sender: FDA-Public Use
  Company Number: 200412954GDS

PATIENT
  Age: 66 Year
  Sex: Female

DRUGS (1)
  1. ADALAT [Suspect]
     Dosage: ORAL
     Route: 048

REACTIONS (1)
  - OEDEMA [None]
